FAERS Safety Report 23577687 (Version 1)
Quarter: 2024Q1

REPORT INFORMATION
  Report Type: Spontaneous
  Country: US (occurrence: US)
  Receive Date: 20240228
  Receipt Date: 20240228
  Transmission Date: 20240409
  Serious: No
  Sender: FDA-Public Use
  Company Number: US-NOVOPROD-1132820

PATIENT

DRUGS (1)
  1. SAXENDA [Suspect]
     Active Substance: LIRAGLUTIDE
     Indication: Obesity
     Dosage: UNK
     Route: 058

REACTIONS (5)
  - Musculoskeletal discomfort [Unknown]
  - Hypertension [Unknown]
  - Oedema [Unknown]
  - Weight increased [Unknown]
  - Intentional product misuse [Unknown]
